FAERS Safety Report 19207335 (Version 4)
Quarter: 2022Q4

REPORT INFORMATION
  Report Type: Spontaneous
  Country: CA (occurrence: CA)
  Receive Date: 20210503
  Receipt Date: 20221006
  Transmission Date: 20230112
  Serious: Yes (Death, Other)
  Sender: FDA-Public Use
  Company Number: CA-NOVARTISPH-NVSC2021CA090632

PATIENT

DRUGS (148)
  1. ERELZI [Suspect]
     Active Substance: ETANERCEPT-SZZS
     Indication: Foetal exposure during pregnancy
     Dosage: MATERNAL DOSE: UNKNOWN
     Route: 064
  2. ERELZI [Suspect]
     Active Substance: ETANERCEPT-SZZS
     Dosage: MATERNAL DOSE: UNKNOWN
     Route: 064
  3. ADALIMUMAB [Suspect]
     Active Substance: ADALIMUMAB
     Indication: Foetal exposure during pregnancy
     Dosage: MATERNAL DOSE: 40.0 MILLIGRAM
     Route: 064
  4. DICLOFENAC [Suspect]
     Active Substance: DICLOFENAC
     Indication: Foetal exposure during pregnancy
     Dosage: MATERNAL DOSE: UNKNOWN
     Route: 064
  5. DICLOFENAC [Suspect]
     Active Substance: DICLOFENAC
     Dosage: MATERNAL DOSE: UNKNOWN
     Route: 064
  6. DICLOFENAC SODIUM [Suspect]
     Active Substance: DICLOFENAC SODIUM
     Indication: Foetal exposure during pregnancy
     Dosage: MATERNAL DOSE: 50MG, QW
     Route: 064
  7. FOLIC ACID [Suspect]
     Active Substance: FOLIC ACID
     Indication: Foetal exposure during pregnancy
     Dosage: MATERNAL DOSE: 1.0 MILLIGRAM
     Route: 064
  8. FOLIC ACID [Suspect]
     Active Substance: FOLIC ACID
     Dosage: MATERNAL DOSE: UNKNOWN
     Route: 064
  9. FOLIC ACID [Suspect]
     Active Substance: FOLIC ACID
     Dosage: MATERNAL DOSE: 5.0 MILLIGRAM
     Route: 064
  10. FOLIC ACID [Suspect]
     Active Substance: FOLIC ACID
     Dosage: MATERNAL DOSE: 5.0 MILLIGRAM
     Route: 064
  11. FOLIC ACID [Suspect]
     Active Substance: FOLIC ACID
     Dosage: MATERNAL DOSE: 25.0 MILLIGRAM
     Route: 064
  12. FOLIC ACID [Suspect]
     Active Substance: FOLIC ACID
     Dosage: MATERNAL DOSE: UNKNOWN
     Route: 064
  13. FOLIC ACID [Suspect]
     Active Substance: FOLIC ACID
     Dosage: MATERNAL DOSE:0.5 MG
     Route: 064
  14. LEFLUNOMIDE [Suspect]
     Active Substance: LEFLUNOMIDE
     Indication: Foetal exposure during pregnancy
     Dosage: MATERNAL DOSE: 20 MG
     Route: 064
  15. RITUXIMAB [Suspect]
     Active Substance: RITUXIMAB
     Indication: Product used for unknown indication
     Dosage: MATERNAL DOSE: UNKNOWN
     Route: 064
  16. RITUXIMAB [Suspect]
     Active Substance: RITUXIMAB
     Dosage: MATERNAL DOSE: UNKNOWN
     Route: 064
  17. RITUXIMAB [Suspect]
     Active Substance: RITUXIMAB
     Dosage: MATERNAL DOSE: UNKNOWN
     Route: 064
  18. RITUXIMAB [Suspect]
     Active Substance: RITUXIMAB
     Dosage: MATERNAL DOSE: UNKNOWN
     Route: 064
  19. COSENTYX [Suspect]
     Active Substance: SECUKINUMAB
     Indication: Foetal exposure during pregnancy
     Dosage: MATERNAL DOSE: UNKNOWN
     Route: 064
  20. METHOTREXATE [Suspect]
     Active Substance: METHOTREXATE
     Indication: Foetal exposure during pregnancy
     Dosage: MATERNAL DOSE: 25.0 MILLIGRAM
     Route: 064
  21. METHOTREXATE [Suspect]
     Active Substance: METHOTREXATE
     Dosage: MATERNAL DOSE: 25.0 MILLIGRAM
     Route: 064
  22. METHOTREXATE [Suspect]
     Active Substance: METHOTREXATE
     Dosage: MATERNAL DOSE: 20.0 MILLIGRAM, QD
     Route: 064
  23. METHOTREXATE [Suspect]
     Active Substance: METHOTREXATE
     Dosage: MATERNAL DOSE:  25.0 MILLIGRAM
     Route: 064
  24. METHOTREXATE [Suspect]
     Active Substance: METHOTREXATE
     Dosage: MATERNAL DOSE: 25.0 MILLIGRAM, QW
     Route: 064
  25. METHOTREXATE [Suspect]
     Active Substance: METHOTREXATE
     Dosage: MATERNAL DOSE:  25.0 MILLIGRAM
     Route: 064
  26. METHOTREXATE [Suspect]
     Active Substance: METHOTREXATE
     Dosage: MATERNAL DOSE:  25.0 MILLIGRAM
     Route: 064
  27. METHOTREXATE [Suspect]
     Active Substance: METHOTREXATE
     Dosage: MATERNAL DOSE:  25.0 MILLIGRAM
     Route: 064
  28. METHOTREXATE [Suspect]
     Active Substance: METHOTREXATE
     Dosage: MATERNAL DOSE:  25.0 MILLIGRAM
     Route: 064
  29. METHOTREXATE [Suspect]
     Active Substance: METHOTREXATE
     Dosage: MATERNAL DOSE: 20.0 MILLIGRAM
     Route: 064
  30. METHOTREXATE [Suspect]
     Active Substance: METHOTREXATE
     Dosage: MATERNAL DOSE: 20.0 MILLIGRAM
     Route: 064
  31. ALENDRONIC ACID [Suspect]
     Active Substance: ALENDRONIC ACID
     Indication: Foetal exposure during pregnancy
     Dosage: MATERNAL DOSE: UNKNOWN (ALENDRONIC SODIUM)
     Route: 064
  32. ALENDRONIC ACID [Suspect]
     Active Substance: ALENDRONIC ACID
     Dosage: MATERNAL DOSE: UNKNOWN (ALENDRONIC SODIUM)
     Route: 064
  33. ALENDRONIC ACID [Suspect]
     Active Substance: ALENDRONIC ACID
     Dosage: MATERNAL DOSE: UNKNOWN (ALENDRONIC SODIUM)
     Route: 064
  34. DIPHENHYDRAMINE HYDROCHLORIDE [Suspect]
     Active Substance: DIPHENHYDRAMINE HYDROCHLORIDE
     Indication: Foetal exposure during pregnancy
     Dosage: MATERNAL DOSE: UNKNOWN
     Route: 064
  35. CORTISONE ACETATE [Suspect]
     Active Substance: CORTISONE ACETATE
     Indication: Foetal exposure during pregnancy
     Dosage: MATERNAL DOSE: UNKNOWN
     Route: 064
  36. CORTISONE ACETATE [Suspect]
     Active Substance: CORTISONE ACETATE
     Dosage: MATERNAL DOSE: 25.0 MILLIGRAM
     Route: 064
  37. CORTISONE ACETATE [Suspect]
     Active Substance: CORTISONE ACETATE
     Dosage: MATERNAL DOSE: 25.0 MILLIGRAM
     Route: 064
  38. CETIRIZINE HYDROCHLORIDE [Suspect]
     Active Substance: CETIRIZINE HYDROCHLORIDE
     Indication: Foetal exposure during pregnancy
     Dosage: MATERNAL DOSE: UNKNOWN
     Route: 064
  39. CETIRIZINE HYDROCHLORIDE [Suspect]
     Active Substance: CETIRIZINE HYDROCHLORIDE
     Dosage: MATERNAL DOSE: 10.0 MILLIGRAM
     Route: 064
  40. DESOXIMETASONE [Suspect]
     Active Substance: DESOXIMETASONE
     Indication: Foetal exposure during pregnancy
     Dosage: MATERNAL DOSE: UNKNOWN
     Route: 064
  41. DESOXIMETASONE [Suspect]
     Active Substance: DESOXIMETASONE
     Dosage: MATERNAL DOSE: UNKNOWN
     Route: 064
  42. DESOXIMETASONE [Suspect]
     Active Substance: DESOXIMETASONE
     Dosage: MATERNAL DOSE: UNKNOWN
     Route: 064
  43. DESOXIMETASONE [Suspect]
     Active Substance: DESOXIMETASONE
     Dosage: MATERNAL DOSE: UNKNOWN
     Route: 064
  44. DESOXIMETASONE [Suspect]
     Active Substance: DESOXIMETASONE
     Dosage: MATERNAL DOSE: UNKNOWN
     Route: 064
  45. HYDROXYCHLOROQUINE [Suspect]
     Active Substance: HYDROXYCHLOROQUINE
     Indication: Foetal exposure during pregnancy
     Dosage: MATERNAL DOSE: 400.0 MILLIGRAM,
     Route: 064
  46. HYDROXYCHLOROQUINE [Suspect]
     Active Substance: HYDROXYCHLOROQUINE
     Dosage: MATERNAL DOSE:UNKNOWN
     Route: 064
  47. HYDROXYCHLOROQUINE [Suspect]
     Active Substance: HYDROXYCHLOROQUINE
     Dosage: MATERNAL DOSE: UNKNOWN
     Route: 064
  48. HYDROXYCHLOROQUINE [Suspect]
     Active Substance: HYDROXYCHLOROQUINE
     Dosage: MATERNAL DOSE: UNKNOWN
     Route: 064
  49. PREDNISONE [Suspect]
     Active Substance: PREDNISONE
     Indication: Foetal exposure during pregnancy
     Dosage: MATERNAL DOSE: 40.0 MILLIGRAM
     Route: 064
  50. PREDNISONE [Suspect]
     Active Substance: PREDNISONE
     Dosage: MATERNAL DOSE: 25.0 MILLIGRAM
     Route: 064
  51. PREDNISONE [Suspect]
     Active Substance: PREDNISONE
     Dosage: MATERNAL DOSE: UNKNOWN
     Route: 064
  52. SULFASALAZINE [Suspect]
     Active Substance: SULFASALAZINE
     Indication: Foetal exposure during pregnancy
     Dosage: MATERNAL DOSE: 1000.0 MILLIGRAM, (TID)
     Route: 064
  53. SULFASALAZINE [Suspect]
     Active Substance: SULFASALAZINE
     Dosage: MATERNAL DOSE: 500.0 MILLIGRAM
     Route: 064
  54. SULFASALAZINE [Suspect]
     Active Substance: SULFASALAZINE
     Dosage: MATERNAL DOSE: 500.0 MILLIGRAM
     Route: 064
  55. SULFASALAZINE [Suspect]
     Active Substance: SULFASALAZINE
     Dosage: MATERNAL DOSE: 1000.0 MILLIGRAM QD
     Route: 064
  56. SULFASALAZINE [Suspect]
     Active Substance: SULFASALAZINE
     Dosage: MATERNAL DOSE: UNKNOWN
     Route: 064
  57. SULFASALAZINE [Suspect]
     Active Substance: SULFASALAZINE
     Dosage: MATERNAL DOSE: UNKNOWN
     Route: 064
  58. SULFASALAZINE [Suspect]
     Active Substance: SULFASALAZINE
     Dosage: MATERNAL DOSE: 1000.0 MILLIGRAM
     Route: 064
  59. SULFASALAZINE [Suspect]
     Active Substance: SULFASALAZINE
     Dosage: MATERNAL DOSE: 100.0 MILLIGRAM, (TID)
     Route: 064
  60. SULFASALAZINE [Suspect]
     Active Substance: SULFASALAZINE
     Dosage: MATERNAL DOSE: 2.0 GRAM, (TID)
     Route: 064
  61. ACETAMINOPHEN [Suspect]
     Active Substance: ACETAMINOPHEN
     Indication: Foetal exposure during pregnancy
     Dosage: MATERNAL DOSE: UNKNOWN
     Route: 064
  62. ACETAMINOPHEN [Suspect]
     Active Substance: ACETAMINOPHEN
     Dosage: MATERNAL DOSE: UNKNOWN
     Route: 064
  63. ACETAMINOPHEN [Suspect]
     Active Substance: ACETAMINOPHEN
     Dosage: MATERNAL DOSE: UNKNOWN
     Route: 064
  64. ACETAMINOPHEN [Suspect]
     Active Substance: ACETAMINOPHEN
     Dosage: MATERNAL DOSE: UNKNOWN
     Route: 064
  65. ACTEMRA [Suspect]
     Active Substance: TOCILIZUMAB
     Indication: Foetal exposure during pregnancy
     Dosage: MATERNAL DOSE: UNKNOWN
     Route: 064
  66. ACTEMRA [Suspect]
     Active Substance: TOCILIZUMAB
     Dosage: MATERNAL DOSE: UNKNOWN
     Route: 064
  67. ACTEMRA [Suspect]
     Active Substance: TOCILIZUMAB
     Dosage: MATERNAL DOSE: UNKNOWN
     Route: 064
  68. PREDNISONE [Suspect]
     Active Substance: PREDNISONE
     Indication: Foetal exposure during pregnancy
     Dosage: MATERNAL DOSE: 40.0 MILLIGRAM
     Route: 064
  69. PREDNISONE [Suspect]
     Active Substance: PREDNISONE
     Dosage: MATERNAL DOSE: UNKNOWN
     Route: 064
  70. HYDROCORTISONE ACETATE [Suspect]
     Active Substance: HYDROCORTISONE ACETATE
     Indication: Foetal exposure during pregnancy
     Dosage: MATERNAL DOSE: UNKNOWN
     Route: 064
  71. ARAVA [Suspect]
     Active Substance: LEFLUNOMIDE
     Indication: Foetal exposure during pregnancy
     Dosage: MATERNAL DOSE: 20.0 MILLIGRAM
     Route: 064
  72. ARAVA [Suspect]
     Active Substance: LEFLUNOMIDE
     Dosage: MATERNAL DOSE: UNKNOWN
     Route: 064
  73. ARAVA [Suspect]
     Active Substance: LEFLUNOMIDE
     Dosage: MATERNAL DOSE: UNKNOWN
     Route: 064
  74. CETIRIZINE HYDROCHLORIDE\PSEUDOEPHEDRINE HYDROCHLORIDE [Suspect]
     Active Substance: CETIRIZINE HYDROCHLORIDE\PSEUDOEPHEDRINE HYDROCHLORIDE
     Indication: Foetal exposure during pregnancy
     Dosage: MATERNAL DOSE: UNKNOWN
     Route: 064
  75. CETIRIZINE HYDROCHLORIDE\PSEUDOEPHEDRINE HYDROCHLORIDE [Suspect]
     Active Substance: CETIRIZINE HYDROCHLORIDE\PSEUDOEPHEDRINE HYDROCHLORIDE
     Dosage: MATERNAL DOSE: UNKNOWN
     Route: 064
  76. CIMZIA [Suspect]
     Active Substance: CERTOLIZUMAB PEGOL
     Indication: Foetal exposure during pregnancy
     Dosage: MATERNAL DOSE: 400 MG (MATERNAL DOSE: UNKNOWN,  SOLUTION FOR INJECTION IN PRE-FILLED SYRINGE)
     Route: 064
  77. CIMZIA [Suspect]
     Active Substance: CERTOLIZUMAB PEGOL
     Dosage: MATERNAL DOSE: UNKNOWN,  SOLUTION FOR INJECTION)
     Route: 064
  78. CIMZIA [Suspect]
     Active Substance: CERTOLIZUMAB PEGOL
     Dosage: MATERNAL DOSE: 400 MG,  SOLUTION FOR INJECTION IN PRE-FILLED SYRINGE)
     Route: 064
  79. CIMZIA [Suspect]
     Active Substance: CERTOLIZUMAB PEGOL
     Dosage: MATERNAL DOSE: UNKNOWN,  SOLUTION FOR INJECTION IN PRE-FILLED SYRINGE
     Route: 064
  80. ENBREL [Suspect]
     Active Substance: ETANERCEPT
     Indication: Foetal exposure during pregnancy
     Dosage: MATERNAL DOSE: 50.0 MILLIGRAM, QW
     Route: 064
  81. ENBREL [Suspect]
     Active Substance: ETANERCEPT
     Dosage: MATERNAL DOSE: 50.0 MILLIGRAM,
     Route: 064
  82. ENBREL [Suspect]
     Active Substance: ETANERCEPT
     Dosage: MATERNAL DOSE: UNKNOWN
     Route: 064
  83. ENBREL [Suspect]
     Active Substance: ETANERCEPT
     Dosage: MATERNAL DOSE:UNKNOWN
     Route: 064
  84. FOSAMAX [Suspect]
     Active Substance: ALENDRONATE SODIUM
     Indication: Foetal exposure during pregnancy
     Dosage: MATERNAL DOSE: UNKNOWN
     Route: 064
  85. FOSAMAX [Suspect]
     Active Substance: ALENDRONATE SODIUM
     Dosage: MATERNAL DOSE: UNKNOWN
     Route: 064
  86. FOSAMAX [Suspect]
     Active Substance: ALENDRONATE SODIUM
     Dosage: MATERNAL DOSE: UNKNOWN
     Route: 064
  87. GOLIMUMAB [Suspect]
     Active Substance: GOLIMUMAB
     Indication: Foetal exposure during pregnancy
     Dosage: MATERNAL DOSE: UNKNOWN
     Route: 064
  88. HYDROXYCHLOROQUINE SULFATE [Suspect]
     Active Substance: HYDROXYCHLOROQUINE SULFATE
     Indication: Foetal exposure during pregnancy
     Dosage: MATERNAL DOSE: 400 MG
     Route: 064
  89. HYDROXYCHLOROQUINE SULFATE [Suspect]
     Active Substance: HYDROXYCHLOROQUINE SULFATE
     Dosage: MATERNAL DOSE: 400 MG
     Route: 064
  90. HYDROXYCHLOROQUINE SULFATE [Suspect]
     Active Substance: HYDROXYCHLOROQUINE SULFATE
     Dosage: MATERNAL DOSE: UNKNOWN
     Route: 064
  91. HUMIRA [Suspect]
     Active Substance: ADALIMUMAB
     Indication: Foetal exposure during pregnancy
     Dosage: MATERNAL DOSE: 4.0 MILLIGRAM
     Route: 064
  92. HUMIRA [Suspect]
     Active Substance: ADALIMUMAB
     Dosage: MATERNAL DOSE: 400.0 MILLIGRAM, QW, SOLUTION
     Route: 064
  93. HUMIRA [Suspect]
     Active Substance: ADALIMUMAB
     Dosage: MATERNAL DOSE: 40.0 MILLIGRAM
     Route: 064
  94. HUMIRA [Suspect]
     Active Substance: ADALIMUMAB
     Dosage: MATERNAL DOSE: 40.0 MILLIGRAM
     Route: 064
  95. HUMIRA [Suspect]
     Active Substance: ADALIMUMAB
     Dosage: MATERNAL DOSE: UNKNOWN
     Route: 064
  96. ORENCIA [Suspect]
     Active Substance: ABATACEPT
     Indication: Foetal exposure during pregnancy
     Dosage: MATERNAL DOSE: UNKNOWN
     Route: 064
  97. ORENCIA [Suspect]
     Active Substance: ABATACEPT
     Dosage: MATERNAL DOSE: UNKNOWN
     Route: 064
  98. ORENCIA [Suspect]
     Active Substance: ABATACEPT
     Dosage: MATERNAL DOSE: UNKNOWN
     Route: 064
  99. OTEZLA [Suspect]
     Active Substance: APREMILAST
     Indication: Foetal exposure during pregnancy
     Dosage: MATERNAL DOSE: UNKNOWN
     Route: 064
  100. PHTHALYLSULFATHIAZOLE [Suspect]
     Active Substance: PHTHALYLSULFATHIAZOLE
     Indication: Foetal exposure during pregnancy
     Dosage: MATERNAL DOSE: 400 MG
     Route: 064
  101. PHTHALYLSULFATHIAZOLE [Suspect]
     Active Substance: PHTHALYLSULFATHIAZOLE
     Dosage: MATERNAL DOSE: UNKNOWN
     Route: 064
  102. PHTHALYLSULFATHIAZOLE [Suspect]
     Active Substance: PHTHALYLSULFATHIAZOLE
     Dosage: MATERNAL DOSE: UNKNOWN
     Route: 064
  103. PHTHALYLSULFATHIAZOLE [Suspect]
     Active Substance: PHTHALYLSULFATHIAZOLE
     Dosage: MATERNAL DOSE: UNKNOWN
     Route: 064
  104. PHTHALYLSULFATHIAZOLE [Suspect]
     Active Substance: PHTHALYLSULFATHIAZOLE
     Dosage: MATERNAL DOSE: UNKNOWN
     Route: 064
  105. PSEUDOEPHEDRINE HYDROCHLORIDE [Suspect]
     Active Substance: PSEUDOEPHEDRINE HYDROCHLORIDE
     Indication: Foetal exposure during pregnancy
     Dosage: MATERNAL DOSE: UNKNOWN
     Route: 064
  106. PSEUDOEPHEDRINE HYDROCHLORIDE [Suspect]
     Active Substance: PSEUDOEPHEDRINE HYDROCHLORIDE
     Dosage: MATERNAL DOSE: UNKNOWN
     Route: 064
  107. REMICADE [Suspect]
     Active Substance: INFLIXIMAB
     Indication: Foetal exposure during pregnancy
     Dosage: MATERNAL DOSE: 400.0 MILLIGRAM
     Route: 064
  108. REMICADE [Suspect]
     Active Substance: INFLIXIMAB
     Dosage: MATERNAL DOSE: UNKNOWN, SOLUTION FOR INFUSION
     Route: 064
  109. REMICADE [Suspect]
     Active Substance: INFLIXIMAB
     Dosage: MATERNAL DOSE: UNKNOWN, POWDER FOR INJECTION
     Route: 064
  110. REMICADE [Suspect]
     Active Substance: INFLIXIMAB
     Dosage: MATERNAL DOSE: 300.0 MILLIGRAM
     Route: 064
  111. SIMPONI [Suspect]
     Active Substance: GOLIMUMAB
     Indication: Foetal exposure during pregnancy
     Dosage: MATERNAL DOSE: UNKNOWN
     Route: 064
  112. SIMPONI [Suspect]
     Active Substance: GOLIMUMAB
     Dosage: MATERNAL DOSE: UNKNOWN
     Route: 064
  113. SOLU-MEDROL [Suspect]
     Active Substance: METHYLPREDNISOLONE SODIUM SUCCINATE
     Indication: Foetal exposure during pregnancy
     Dosage: MATERNAL DOSE: UNKNOWN
     Route: 064
  114. STELARA [Suspect]
     Active Substance: USTEKINUMAB
     Indication: Foetal exposure during pregnancy
     Dosage: MATERNAL DOSE: UNKNOWN, SOLUTION
     Route: 064
  115. XELJANZ [Suspect]
     Active Substance: TOFACITINIB CITRATE
     Indication: Foetal exposure during pregnancy
     Dosage: MATERNAL DOSE: UNKNOWN
     Route: 064
  116. XELJANZ [Suspect]
     Active Substance: TOFACITINIB CITRATE
     Dosage: MATERNAL DOSE: UNKNOWN
     Route: 064
  117. TOCILIZUMAB [Suspect]
     Active Substance: TOCILIZUMAB
     Indication: Foetal exposure during pregnancy
     Dosage: MATERNAL DOSE: UNKNOWN
     Route: 064
  118. PREDNISONE [Suspect]
     Active Substance: PREDNISONE
     Indication: Foetal exposure during pregnancy
     Dosage: MATERNAL DOSE: UNKNOWN
     Route: 064
  119. CALCIUM CARBONATE [Suspect]
     Active Substance: CALCIUM CARBONATE
     Indication: Foetal exposure during pregnancy
     Dosage: MATERNAL DOSE: UNKNOWN
     Route: 064
  120. CALCIUM [Suspect]
     Active Substance: CALCIUM
     Indication: Foetal exposure during pregnancy
     Dosage: MATERNAL DOSE: UNKNOWN
     Route: 064
  121. DESOXIMETASONE [Suspect]
     Active Substance: DESOXIMETASONE
     Indication: Foetal exposure during pregnancy
     Dosage: MATERNAL DOSE: UNKNOWN
     Route: 064
  122. DESOXIMETASONE [Suspect]
     Active Substance: DESOXIMETASONE
     Dosage: MATERNAL DOSE: UNKNOWN
     Route: 064
  123. DESOXIMETASONE [Suspect]
     Active Substance: DESOXIMETASONE
     Dosage: MATERNAL DOSE: UNKNOWN
     Route: 064
  124. DESOXIMETASONE [Suspect]
     Active Substance: DESOXIMETASONE
     Dosage: MATERNAL DOSE: UNKNOWN
     Route: 064
  125. DESOXIMETASONE [Suspect]
     Active Substance: DESOXIMETASONE
     Dosage: MATERNAL DOSE: UNKNOWN
     Route: 064
  126. VITAMIN D3 [Suspect]
     Active Substance: CHOLECALCIFEROL
     Indication: Foetal exposure during pregnancy
     Dosage: MATERNAL DOSE: UNKNOWN
     Route: 064
  127. VITAMIN D3 [Suspect]
     Active Substance: CHOLECALCIFEROL
     Dosage: MATERNAL DOSE: UNKNOWN
     Route: 064
  128. CERTOLIZUMAB PEGOL [Suspect]
     Active Substance: CERTOLIZUMAB PEGOL
     Indication: Foetal exposure during pregnancy
     Dosage: MATERNAL DOSE: UNKNOWN
     Route: 064
  129. CORTISONE ACETATE [Suspect]
     Active Substance: CORTISONE ACETATE
     Indication: Foetal exposure during pregnancy
     Dosage: MATERNAL EXPOSURE:25.0 MG
     Route: 064
  130. CORTISONE ACETATE [Suspect]
     Active Substance: CORTISONE ACETATE
     Dosage: MATERNAL EXPOSURE:25.0 MG
     Route: 064
  131. CORTISONE ACETATE [Suspect]
     Active Substance: CORTISONE ACETATE
     Dosage: MATERNAL EXPOSURE:25.0 MG
     Route: 064
  132. CALCIUM GLUBIONATE [Suspect]
     Active Substance: CALCIUM GLUBIONATE
     Indication: Foetal exposure during pregnancy
     Dosage: MATERNAL DOSE: UNKNOWN
     Route: 064
  133. TOFACITINIB CITRATE [Concomitant]
     Active Substance: TOFACITINIB CITRATE
     Indication: Foetal exposure during pregnancy
     Dosage: MATERNAL DOSE: UNKNOWN
     Route: 064
  134. LISINOPRIL [Concomitant]
     Active Substance: LISINOPRIL
     Indication: Foetal exposure during pregnancy
     Dosage: MATERNAL DOSE: UNKNOWN
     Route: 064
  135. LISINOPRIL [Concomitant]
     Active Substance: LISINOPRIL
     Dosage: MATERNAL DOSE: UNKNOWN
     Route: 064
  136. SULFASALAZINE [Concomitant]
     Active Substance: SULFASALAZINE
     Indication: Foetal exposure during pregnancy
     Dosage: MATERNAL DOSE: UNKNOWN
     Route: 064
  137. SULFASALAZINE [Concomitant]
     Active Substance: SULFASALAZINE
     Dosage: MATERNAL DOSE: 1.0G
     Route: 064
  138. IBUPROFEN [Concomitant]
     Active Substance: IBUPROFEN
     Indication: Foetal exposure during pregnancy
     Dosage: MATERNAL DOSE: UNKNOWN
     Route: 064
  139. IBUPROFEN [Concomitant]
     Active Substance: IBUPROFEN
     Dosage: MATERNAL DOSE: UNKNOWN
     Route: 064
  140. CALCIUM GLUCONATE [Concomitant]
     Active Substance: CALCIUM GLUCONATE
     Indication: Foetal exposure during pregnancy
     Dosage: MATERNAL DOSE: UNKNOWN
     Route: 064
  141. CODEINE [Concomitant]
     Active Substance: CODEINE
     Indication: Foetal exposure during pregnancy
     Dosage: MATERNAL DOSE: UNKNOWN
     Route: 064
  142. CODEINE [Concomitant]
     Active Substance: CODEINE
     Dosage: MATERNAL DOSE: UNKNOWN
     Route: 064
  143. CAFFEINE CITRATE [Concomitant]
     Active Substance: CAFFEINE CITRATE
     Indication: Foetal exposure during pregnancy
     Dosage: MATERNAL DOSE: UNKNOWN
     Route: 064
  144. CAFFEINE CITRATE [Concomitant]
     Active Substance: CAFFEINE CITRATE
     Dosage: UNK (NOT SPECIFIED)
     Route: 064
  145. DICLOFENAC POTASSIUM [Concomitant]
     Active Substance: DICLOFENAC POTASSIUM
     Indication: Foetal exposure during pregnancy
     Dosage: MATERNAL DOSE: UNKNOWN
     Route: 064
  146. PANTOPRAZOLE [Concomitant]
     Active Substance: PANTOPRAZOLE
     Indication: Foetal exposure during pregnancy
     Dosage: MATERNAL DOSE: UNKNOWN
     Route: 065
  147. QUETIAPINE FUMARATE [Concomitant]
     Active Substance: QUETIAPINE FUMARATE
     Indication: Foetal exposure during pregnancy
     Dosage: MATERNAL DOSE: UNKNOWN
     Route: 064
  148. RAMIPRIL [Concomitant]
     Active Substance: RAMIPRIL
     Indication: Foetal exposure during pregnancy
     Dosage: MATERNAL DOSE: UNKNOWN
     Route: 065

REACTIONS (1)
  - Death neonatal [Fatal]
